FAERS Safety Report 7919215-0 (Version None)
Quarter: 2011Q4

REPORT INFORMATION
  Report Type: 
  Country: None (occurrence: None)
  Receive Date: 20111117
  Receipt Date: 20111103
  Transmission Date: 20120403
  Serious: Yes (Other)
  Sender: FDA-Public Use
  Company Number: US-AMGEN-USASP2011058704

PATIENT
  Age: 54 Year
  Sex: Female

DRUGS (3)
  1. WARFARIN SODIUM [Concomitant]
     Dosage: UNK
  2. ENBREL [Suspect]
     Indication: RHEUMATOID ARTHRITIS
     Dosage: 7900 MG, UNK
  3. AZATHIOPRINE [Concomitant]
     Dosage: UNK

REACTIONS (2)
  - SYSTEMIC LUPUS ERYTHEMATOSUS [None]
  - ANTIPHOSPHOLIPID SYNDROME [None]
